FAERS Safety Report 18659678 (Version 1)
Quarter: 2020Q4

REPORT INFORMATION
  Report Type: Spontaneous
  Country: US (occurrence: US)
  Receive Date: 20201224
  Receipt Date: 20201224
  Transmission Date: 20210114
  Serious: No
  Sender: FDA-Public Use
  Company Number: US-BAYER-2020-260121

PATIENT
  Age: 34 Year
  Sex: Male

DRUGS (1)
  1. BETASERON [Suspect]
     Active Substance: INTERFERON BETA-1B
     Dosage: UNK
     Dates: start: 20200520, end: 20201125

REACTIONS (3)
  - Injection site pain [None]
  - Injection site haemorrhage [None]
  - Injection site pain [None]

NARRATIVE: CASE EVENT DATE: 20200602
